FAERS Safety Report 4406343-X (Version None)
Quarter: 2004Q3

REPORT INFORMATION
  Report Type: 
  Country: None (occurrence: None)
  Receive Date: 20040723
  Receipt Date: 20030626
  Transmission Date: 20050211
  Serious: No
  Sender: FDA-Public Use
  Company Number: US-GLAXOSMITHKLINE-A0414046A

PATIENT
  Age: 76 Year
  Sex: Female

DRUGS (7)
  1. AVANDIA [Suspect]
     Dosage: 4MG PER DAY
     Route: 048
     Dates: start: 20030501, end: 20030619
  2. FUROSEMIDE [Concomitant]
  3. PROCARDIA [Concomitant]
  4. DIOVAN [Concomitant]
  5. GLUCOVANCE [Concomitant]
  6. CLONIDINE HCL [Concomitant]
  7. ZOCOR [Concomitant]

REACTIONS (2)
  - DYSPNOEA [None]
  - OEDEMA PERIPHERAL [None]
